FAERS Safety Report 10957131 (Version 1)
Quarter: 2015Q1

REPORT INFORMATION
  Report Type: Spontaneous
  Country: US (occurrence: US)
  Receive Date: 20150326
  Receipt Date: 20150326
  Transmission Date: 20150721
  Serious: No
  Sender: FDA-Public Use
  Company Number: US-PFIZER INC-2015103256

PATIENT
  Sex: Female

DRUGS (2)
  1. ZOLOFT [Suspect]
     Active Substance: SERTRALINE HYDROCHLORIDE
     Dosage: UNK
  2. RISPERDAL [Suspect]
     Active Substance: RISPERIDONE
     Dosage: UNK

REACTIONS (3)
  - Hypothyroidism [Recovered/Resolved]
  - Weight increased [Recovered/Resolved]
  - Memory impairment [Unknown]
